FAERS Safety Report 7364900-5 (Version None)
Quarter: 2011Q1

REPORT INFORMATION
  Report Type: 
  Country: None (occurrence: None)
  Receive Date: 20110321
  Receipt Date: 20110201
  Transmission Date: 20110831
  Serious: Yes (Other)
  Sender: FDA-Public Use
  Company Number: JP-ASTRAZENECA-2011SE14908

PATIENT
  Age: 69 Year
  Sex: Female

DRUGS (12)
  1. TAKEPRON [Concomitant]
     Route: 048
     Dates: start: 20100818
  2. MEROPENEM [Suspect]
     Route: 042
     Dates: start: 20101112, end: 20101115
  3. HEPARIN SODIUM [Concomitant]
     Dates: start: 20101110
  4. DEXMEDETOMIDINE HYDROCHLORIDE [Concomitant]
     Route: 042
     Dates: start: 20101110
  5. SAXIZON [Concomitant]
     Dates: start: 20101110
  6. ITRIZOLE [Concomitant]
     Route: 048
     Dates: start: 20100818
  7. MEROPENEM [Suspect]
     Indication: FEBRILE NEUTROPENIA
     Route: 042
     Dates: start: 20101108, end: 20101109
  8. BAKTAR [Concomitant]
     Route: 048
     Dates: start: 20100818
  9. MEROPENEM [Suspect]
     Route: 042
     Dates: start: 20101110, end: 20101110
  10. GRAN [Concomitant]
     Dates: start: 20101105
  11. VALTREX [Concomitant]
     Route: 048
     Dates: start: 20100901
  12. PREDONINE [Concomitant]
     Route: 048
     Dates: start: 20100731

REACTIONS (1)
  - REEXPANSION PULMONARY OEDEMA [None]
